FAERS Safety Report 7253269-2 (Version None)
Quarter: 2011Q1

REPORT INFORMATION
  Report Type: 
  Country: None (occurrence: None)
  Receive Date: 20110129
  Receipt Date: 20100212
  Transmission Date: 20110831
  Serious: No
  Sender: FDA-Public Use
  Company Number: US-ABBOTT-10P-163-0626639-00

PATIENT
  Sex: Female
  Weight: 34.05 kg

DRUGS (5)
  1. MORPHINE [Concomitant]
     Indication: ABDOMINAL PAIN
     Route: 048
  2. FENTANYL [Concomitant]
     Indication: ABDOMINAL PAIN
     Dosage: LOLLIPOP
     Route: 050
  3. HUMIRA [Suspect]
     Route: 058
     Dates: start: 20050101, end: 20050101
  4. HUMIRA [Suspect]
     Route: 058
     Dates: start: 20050101
  5. HUMIRA [Suspect]
     Indication: CROHN'S DISEASE
     Route: 058
     Dates: start: 20050101, end: 20050101

REACTIONS (3)
  - DRUG INEFFECTIVE [None]
  - DIARRHOEA [None]
  - ABDOMINAL PAIN [None]
